FAERS Safety Report 9908666 (Version 1)
Quarter: 2014Q1

REPORT INFORMATION
  Report Type: Spontaneous
  Country: TN (occurrence: TN)
  Receive Date: 20140219
  Receipt Date: 20140219
  Transmission Date: 20141002
  Serious: Yes (Life-Threatening)
  Sender: FDA-Public Use
  Company Number: TN-BAYER-2014-022709

PATIENT
  Age: 34 Year
  Sex: Female

DRUGS (1)
  1. JASMINE [Suspect]
     Indication: CONTRACEPTION
     Dosage: UNK UNK, QD
     Route: 048

REACTIONS (1)
  - Phlebitis [Recovered/Resolved]
